FAERS Safety Report 7931044-0 (Version None)
Quarter: 2011Q4

REPORT INFORMATION
  Report Type: 
  Country: None (occurrence: None)
  Receive Date: 20111121
  Receipt Date: 20111111
  Transmission Date: 20120403
  Serious: Yes (Disabling)
  Sender: FDA-Public Use
  Company Number: US-CEPHALON-2011005798

PATIENT
  Sex: Male

DRUGS (2)
  1. GABITRIL [Suspect]
     Route: 048
  2. GABITRIL [Suspect]
     Indication: INITIAL INSOMNIA
     Route: 048

REACTIONS (2)
  - FALL [None]
  - LOWER LIMB FRACTURE [None]
